FAERS Safety Report 7525108-3 (Version None)
Quarter: 2011Q2

REPORT INFORMATION
  Report Type: 
  Country: None (occurrence: None)
  Receive Date: 20110606
  Receipt Date: 20091027
  Transmission Date: 20111010
  Serious: Yes (Other)
  Sender: FDA-Public Use
  Company Number: US-BAYER-200937714NA

PATIENT
  Age: 62 Year
  Sex: Male
  Weight: 130 kg

DRUGS (35)
  1. LASIX [Concomitant]
     Dosage: 40 MG, QD
     Route: 048
     Dates: start: 19930101
  2. AMIODARONE HCL [Concomitant]
     Dosage: 150 MG PER PERFUSIONIST
     Dates: start: 20061129, end: 20061129
  3. ISOFLURANE [Concomitant]
     Dosage: INHALANT
     Route: 055
     Dates: start: 20061129, end: 20061129
  4. VECURONIUM BROMIDE [Concomitant]
     Dosage: UNK
     Route: 042
     Dates: start: 20061129, end: 20061129
  5. FORANE [Concomitant]
     Dosage: 0.75-1 % INHALANT/PER PERFUSIONIST
     Dates: start: 20061129, end: 20061129
  6. COUMADIN [Concomitant]
     Dosage: 5-7.5 MG DAILY
     Route: 048
     Dates: start: 19920101
  7. CEFAZOLIN [Concomitant]
     Dosage: 2 GRAMS
     Route: 042
     Dates: start: 20061129, end: 20061129
  8. ETOMIDATE [Concomitant]
     Dosage: UNK
     Route: 042
     Dates: start: 20061129, end: 20061129
  9. MANNITOL [Concomitant]
     Dosage: 75 G, PER PERFUSIONIST
     Dates: start: 20061129, end: 20061129
  10. MAGNESIUM SULFATE [Concomitant]
     Dosage: 2 G, PER PERFUSIONIST
     Dates: start: 20061129, end: 20061129
  11. BENADRYL [Concomitant]
     Dosage: 50 MG, PER PERFUSIONIST
     Dates: start: 20061129, end: 20061129
  12. MILRINONE [Concomitant]
     Dosage: 4 MG, PER PERFUSIONIST
     Dates: start: 20061129, end: 20061129
  13. LIPITOR [Concomitant]
     Dosage: 40 MG, QD
     Route: 048
     Dates: start: 19930101
  14. ACETYLSALICYLIC ACID SRT [Concomitant]
     Dosage: 81 MG, QD
     Route: 048
     Dates: start: 20060101
  15. HEPARIN [Concomitant]
     Dosage: PER PROTOCOL
     Route: 042
     Dates: start: 20061121, end: 20061129
  16. CEFAZOLIN [Concomitant]
     Dosage: 1 G, UNK
     Route: 042
     Dates: start: 20061121
  17. INSULIN [Concomitant]
     Dosage: 70 U, PER PERFUSIONIST
     Dates: start: 20061129, end: 20061129
  18. AMOXICILLIN [Concomitant]
     Indication: ENDOCARDITIS PROPHYLAXIS
     Dosage: 500 MG, UNK
     Route: 048
     Dates: start: 20061002
  19. TRASYLOL [Suspect]
     Indication: CARDIAC ABLATION
  20. HEPARIN [Concomitant]
     Dosage: 45000 U, UNK
     Route: 042
     Dates: start: 20061129, end: 20061129
  21. METOPROLOL TARTRATE [Concomitant]
     Dosage: 10 MG, QD
     Route: 048
     Dates: start: 20061121
  22. PROTAMINE SULFATE [Concomitant]
     Dosage: 450 MG, UNK
     Route: 042
     Dates: start: 20061129, end: 20061129
  23. OPTIRAY 300 [Concomitant]
     Indication: CATHETERISATION CARDIAC
     Dosage: 155 ML, UNK
     Route: 042
     Dates: start: 20061124, end: 20061124
  24. TRASYLOL [Suspect]
     Indication: MITRAL VALVE REPLACEMENT
     Dosage: 200 ML (CARDIOPULMONARY BYPASS PRIME)
     Route: 042
     Dates: start: 20061129, end: 20061129
  25. LASIX [Concomitant]
     Dosage: UNK
     Route: 042
     Dates: start: 20061129, end: 20061129
  26. AMIODARONE HCL [Concomitant]
     Dosage: 400 MG, BID
     Route: 048
     Dates: start: 20061121
  27. PEPCID [Concomitant]
     Dosage: 20 MG, PER PERFUSIONIST
     Dates: start: 20061129, end: 20061129
  28. TRASYLOL [Suspect]
     Indication: AORTIC VALVE REPLACEMENT
     Dosage: 1 ML, ONCE
     Route: 042
     Dates: start: 20061129, end: 20061129
  29. ZETIA [Concomitant]
     Dosage: 10 MG, QD
     Route: 048
     Dates: start: 19930101
  30. PLAVIX [Concomitant]
     Dosage: 75 MG, QD
     Route: 048
     Dates: start: 20061121
  31. LIDOCAINE [Concomitant]
     Dosage: 200 MG, PER PERFUSIONIST
     Dates: start: 20061129, end: 20061129
  32. PLATELETS [Concomitant]
     Dosage: 14 U, UNK
     Route: 042
     Dates: start: 20061129, end: 20061129
  33. TRASYLOL [Suspect]
     Indication: COX-MAZE PROCEDURE
     Dosage: UNK (INFUSION DOSE)
     Route: 042
     Dates: start: 20061129, end: 20061129
  34. SUCCINYLCHOLINE CHLORIDE [Concomitant]
     Dosage: UNK
     Route: 042
     Dates: start: 20061129, end: 20061129
  35. FENTANYL [Concomitant]
     Dosage: UNK
     Route: 042
     Dates: start: 20061129, end: 20061129

REACTIONS (6)
  - RENAL IMPAIRMENT [None]
  - UNEVALUABLE EVENT [None]
  - RENAL FAILURE [None]
  - INJURY [None]
  - PAIN [None]
  - RENAL FAILURE ACUTE [None]
